FAERS Safety Report 4961780-X (Version None)
Quarter: 2006Q1

REPORT INFORMATION
  Report Type: 
  Country: None (occurrence: None)
  Receive Date: 20060329
  Receipt Date: 20060317
  Transmission Date: 20060701
  Serious: Yes (Death, Life-Threatening)
  Sender: FDA-Public Use
  Company Number: 2006JP000749

PATIENT
  Age: 57 Year
  Sex: Female

DRUGS (4)
  1. PROGRAF [Suspect]
     Indication: RHEUMATOID ARTHRITIS
     Dosage: SEE IMAGE
     Route: 048
     Dates: start: 20050608, end: 20051101
  2. PROGRAF [Suspect]
     Indication: RHEUMATOID ARTHRITIS
     Dosage: SEE IMAGE
     Route: 048
     Dates: start: 20051118, end: 20051208
  3. PROGRAF [Suspect]
     Indication: RHEUMATOID ARTHRITIS
     Dosage: SEE IMAGE
     Route: 048
     Dates: start: 20051209, end: 20060301
  4. MEDROL ACETATE [Concomitant]

REACTIONS (6)
  - ACUTE PULMONARY OEDEMA [None]
  - BLOOD GLUCOSE INCREASED [None]
  - CARDIOTOXICITY [None]
  - HEART RATE INCREASED [None]
  - NASOPHARYNGITIS [None]
  - RESPIRATORY FAILURE [None]
